FAERS Safety Report 7073683-8 (Version None)
Quarter: 2010Q4

REPORT INFORMATION
  Report Type: 
  Country: None (occurrence: None)
  Receive Date: 20101029
  Receipt Date: 20100716
  Transmission Date: 20110411
  Serious: No
  Sender: FDA-Public Use
  Company Number: A0873135A

PATIENT
  Age: 56 Year
  Sex: Female

DRUGS (9)
  1. ADVAIR DISKUS 100/50 [Suspect]
     Indication: ASTHMA
     Dosage: 1PUFF TWICE PER DAY
     Route: 055
     Dates: start: 20100715
  2. SYNTHROID [Concomitant]
  3. TYLENOL W/ CODEINE NO. 3 [Concomitant]
  4. ESTROGEN [Concomitant]
  5. PROGESTERONE [Concomitant]
  6. ANTIOXIDANT [Concomitant]
  7. IODINE [Concomitant]
  8. VITAMIN E [Concomitant]
  9. VITAMIN D [Concomitant]

REACTIONS (4)
  - COUGH [None]
  - DYSPHONIA [None]
  - INCREASED UPPER AIRWAY SECRETION [None]
  - RHINORRHOEA [None]
